FAERS Safety Report 5265658-6 (Version None)
Quarter: 2007Q1

REPORT INFORMATION
  Report Type: 
  Country: None (occurrence: None)
  Receive Date: 20061213
  Receipt Date: 20050727
  Transmission Date: 20070707
  Serious: Yes (Other)
  Sender: FDA-Public Use
  Company Number: 2005UW11174

PATIENT
  Age: 61 Year
  Sex: Female
  Weight: 68.038 kg

DRUGS (9)
  1. IRESSA [Suspect]
     Indication: NON-SMALL CELL LUNG CANCER
     Dates: start: 20041001
  2. WELLBUTRIN [Concomitant]
  3. LEXAPRO [Concomitant]
  4. ACCUPRIL [Concomitant]
  5. HYDROCHLOROTHIAZIDE [Concomitant]
  6. VITAMIN B COMPLEX CAP [Concomitant]
  7. ASPIRIN [Concomitant]
  8. FOLIC ACID [Concomitant]
  9. NORVASC [Concomitant]

REACTIONS (7)
  - DIARRHOEA [None]
  - DRY EYE [None]
  - EYE HAEMORRHAGE [None]
  - HYPOTRICHOSIS [None]
  - MUCOUS MEMBRANE DISORDER [None]
  - NASAL DISCOMFORT [None]
  - RASH [None]
